FAERS Safety Report 18749764 (Version 6)
Quarter: 2021Q2

REPORT INFORMATION
  Report Type: Spontaneous
  Country: CA (occurrence: CA)
  Receive Date: 20210117
  Receipt Date: 20210526
  Transmission Date: 20210717
  Serious: Yes (Other)
  Sender: FDA-Public Use
  Company Number: CA-CELLTRION INC.-2020CA034333

PATIENT

DRUGS (16)
  1. INFLECTRA [Suspect]
     Active Substance: INFLIXIMAB-DYYB
     Dosage: 900 MG EVERY 8 WEEKS
     Route: 042
     Dates: start: 20200814
  2. BENADRYL [Concomitant]
     Active Substance: DIPHENHYDRAMINE HYDROCHLORIDE
     Dosage: 50 MG
     Route: 042
  3. WELLBUTRIN [Concomitant]
     Active Substance: BUPROPION HYDROCHLORIDE
     Dosage: 150 MG,OD
  4. INFLECTRA [Suspect]
     Active Substance: INFLIXIMAB-DYYB
     Dosage: 10 MG/KG
     Route: 042
     Dates: start: 20201211
  5. INFLECTRA [Suspect]
     Active Substance: INFLIXIMAB-DYYB
     Indication: CROHN^S DISEASE
     Dosage: 400 MG EVERY 8 WEEKS
     Route: 042
     Dates: start: 20200814
  6. INFLECTRA [Suspect]
     Active Substance: INFLIXIMAB-DYYB
     Dosage: 900 MG 8 WEEKS
     Route: 042
     Dates: start: 20210107
  7. GABAPENTIN. [Concomitant]
     Active Substance: GABAPENTIN
     Dosage: 600 MG, 1X/DAY QHS
  8. SINEQUAN [Concomitant]
     Active Substance: DOXEPIN HYDROCHLORIDE
     Dosage: UNK (STOP DATE: 07?JAN?2021)
  9. INFLECTRA [Suspect]
     Active Substance: INFLIXIMAB-DYYB
     Dosage: 800 MG EVERY 4 WEEKS
     Route: 042
     Dates: start: 20200814
  10. INFLECTRA [Suspect]
     Active Substance: INFLIXIMAB-DYYB
     Dosage: 900 MG 8 WEEKS
     Route: 042
     Dates: start: 20210107
  11. INFLECTRA [Suspect]
     Active Substance: INFLIXIMAB-DYYB
     Dosage: 900 MG 8 WEEKS
     Route: 042
     Dates: start: 20210312
  12. INFLECTRA [Suspect]
     Active Substance: INFLIXIMAB-DYYB
     Dosage: 400 MG EVERY 8 WEEKS
     Route: 042
     Dates: start: 20201119
  13. INFLECTRA [Suspect]
     Active Substance: INFLIXIMAB-DYYB
     Dosage: 900 MG 8 WEEKS
     Route: 042
     Dates: start: 20210507, end: 20210507
  14. GABAPENTIN. [Concomitant]
     Active Substance: GABAPENTIN
     Dosage: 300 MG, 1X/DAY QAM
  15. INFLECTRA [Suspect]
     Active Substance: INFLIXIMAB-DYYB
     Dosage: 900 MG 8 WEEKS
     Route: 042
     Dates: start: 20210312
  16. BLEXTEN [Concomitant]
     Active Substance: BILASTINE
     Dosage: 20 MG, DAILY
     Route: 048
     Dates: start: 20210426

REACTIONS (26)
  - Diabetes mellitus [Unknown]
  - Nasal congestion [Recovered/Resolved]
  - Flushing [Recovered/Resolved]
  - Skin warm [Recovered/Resolved]
  - Dry skin [Recovered/Resolved]
  - Headache [Recovered/Resolved]
  - Chest discomfort [Recovered/Resolved]
  - Chest discomfort [Recovered/Resolved]
  - Back pain [Recovered/Resolved]
  - Blood glucose increased [Recovering/Resolving]
  - Pruritus [Recovering/Resolving]
  - Malaise [Recovered/Resolved]
  - Drug level decreased [Unknown]
  - Flushing [Recovered/Resolved]
  - Blood iron decreased [Unknown]
  - Dyspnoea [Recovered/Resolved]
  - Therapeutic product effect incomplete [Unknown]
  - Fatigue [Unknown]
  - Blood pressure increased [Recovered/Resolved]
  - Haemoglobin decreased [Unknown]
  - Nausea [Recovering/Resolving]
  - Off label use [Unknown]
  - Infusion related reaction [Unknown]
  - Nail bed disorder [Recovered/Resolved]
  - Asthenia [Unknown]
  - Back pain [Recovered/Resolved]

NARRATIVE: CASE EVENT DATE: 20210107
